FAERS Safety Report 4965248-6 (Version None)
Quarter: 2006Q1

REPORT INFORMATION
  Report Type: 
  Country: None (occurrence: None)
  Receive Date: 20060130
  Receipt Date: 20050913
  Transmission Date: 20060701
  Serious: No
  Sender: FDA-Public Use
  Company Number: COT_0266_2005

PATIENT
  Age: 42 Year
  Sex: Female
  Weight: 57.1532 kg

DRUGS (5)
  1. VENTAVIS [Suspect]
     Indication: PULMONARY HYPERTENSION
     Dosage: 2.5 MCG 6TO9X/DAY IH
     Route: 055
     Dates: start: 20050822
  2. PRILOSEC [Concomitant]
  3. HDYROCHLOROTHIAZIDE [Concomitant]
  4. VERAPAMIL HCL [Concomitant]
  5. FERROUS SULFATE TAB [Concomitant]

REACTIONS (3)
  - FLUSHING [None]
  - HEADACHE [None]
  - MENORRHAGIA [None]
